FAERS Safety Report 25773600 (Version 1)
Quarter: 2025Q3

REPORT INFORMATION
  Report Type: Spontaneous
  Country: EU (occurrence: EU)
  Receive Date: 20250908
  Receipt Date: 20250908
  Transmission Date: 20251020
  Serious: Yes (Other)
  Sender: CHEPLAPHARM
  Company Number: None

PATIENT
  Age: 26 Year
  Sex: Female
  Weight: 72 kg

DRUGS (23)
  1. GANCICLOVIR [Suspect]
     Active Substance: GANCICLOVIR
     Indication: Cytomegalovirus colitis
     Route: 048
     Dates: start: 20241225
  2. GANCICLOVIR [Suspect]
     Active Substance: GANCICLOVIR
     Indication: Cytomegalovirus colitis
     Dosage: DAILY DOSE: 1800 MILLIGRAM
     Route: 048
     Dates: start: 20250513
  3. GANCICLOVIR [Suspect]
     Active Substance: GANCICLOVIR
     Indication: Cytomegalovirus colitis
     Route: 042
  4. VALGANCICLOVIR [Suspect]
     Active Substance: VALGANCICLOVIR
     Indication: Antiviral prophylaxis
     Route: 048
     Dates: start: 20250513
  5. TACROLIMUS [Concomitant]
     Active Substance: TACROLIMUS
  6. CELLCEPT [Concomitant]
     Active Substance: MYCOPHENOLATE MOFETIL
  7. PREDNISONE [Concomitant]
     Active Substance: PREDNISONE
  8. Lansoprazole(generic) [Concomitant]
  9. BACTRIM [Concomitant]
     Active Substance: SULFAMETHOXAZOLE\TRIMETHOPRIM
  10. AMBISOME [Concomitant]
     Active Substance: AMPHOTERICIN B
  11. CALCIUM\CHOLECALCIFEROL [Concomitant]
     Active Substance: CALCIUM\CHOLECALCIFEROL
  12. DOMPERIDONE [Concomitant]
     Active Substance: DOMPERIDONE
  13. AMITRIPTYLINE HYDROCHLORIDE [Concomitant]
     Active Substance: AMITRIPTYLINE HYDROCHLORIDE
  14. PRIMPERAN [Concomitant]
     Active Substance: METOCLOPRAMIDE HYDROCHLORIDE
  15. HYDROXYZINE [Concomitant]
     Active Substance: HYDROXYZINE HYDROCHLORIDE
  16. ACETAMINOPHEN [Concomitant]
     Active Substance: ACETAMINOPHEN
  17. LIDOCAINE [Concomitant]
     Active Substance: LIDOCAINE
  18. SERTRALINE [Concomitant]
     Active Substance: SERTRALINE HYDROCHLORIDE
  19. MELATONIN [Concomitant]
     Active Substance: MELATONIN
  20. ALBUTEROL [Concomitant]
     Active Substance: ALBUTEROL
  21. LACTULOSE [Concomitant]
     Active Substance: LACTULOSE
  22. MAGNESIUM [Concomitant]
     Active Substance: MAGNESIUM
  23. CETIRIZINE [Concomitant]
     Active Substance: CETIRIZINE HYDROCHLORIDE

REACTIONS (6)
  - Genotype drug resistance test positive [Not Recovered/Not Resolved]
  - Hepatic cytolysis [Unknown]
  - Diarrhoea [Unknown]
  - Condition aggravated [Unknown]
  - Underdose [Unknown]
  - Off label use [Recovered/Resolved]

NARRATIVE: CASE EVENT DATE: 20241225
